FAERS Safety Report 4988381-1 (Version None)
Quarter: 2006Q2

REPORT INFORMATION
  Report Type: 
  Country: None (occurrence: None)
  Receive Date: 20060502
  Receipt Date: 20060421
  Transmission Date: 20061013
  Serious: Yes (Other)
  Sender: FDA-Public Use
  Company Number: US-JNJFOC-20060405176

PATIENT
  Age: 42 Year
  Sex: Female
  Weight: 61.24 kg

DRUGS (1)
  1. ORTHO EVRA [Suspect]
     Route: 062

REACTIONS (4)
  - ABDOMINAL PAIN [None]
  - HYSTERECTOMY [None]
  - OOPHORECTOMY [None]
  - OVARIAN ENLARGEMENT [None]
